FAERS Safety Report 5137057-9 (Version None)
Quarter: 2006Q4

REPORT INFORMATION
  Report Type: 
  Country: None (occurrence: None)
  Receive Date: 20061030
  Receipt Date: 20061017
  Transmission Date: 20070319
  Serious: Yes (Other)
  Sender: FDA-Public Use
  Company Number: PHBS2006BR16269

PATIENT
  Age: 81 Year
  Sex: Female
  Weight: 76 kg

DRUGS (6)
  1. SLOW-K [Suspect]
     Indication: HYPOKALAEMIA
     Dosage: 600 MG, BID
     Route: 048
     Dates: end: 20061017
  2. SLOW-K [Suspect]
     Dosage: 600 MG, QD
     Route: 048
  3. DIROXINA [Concomitant]
     Indication: ISCHAEMIA
     Dosage: 0.25 MG, QW5
     Route: 048
     Dates: start: 20010101
  4. HIGROTON [Concomitant]
     Indication: HYPERTENSION
     Dosage: 50 MG/DAY
     Route: 048
     Dates: start: 19860101
  5. MONOCORDIL [Concomitant]
     Dosage: 40 MG/DAY
     Route: 048
     Dates: start: 19860101
  6. CARVEDILOL [Concomitant]
     Dosage: 6250 MG/DAY
     Route: 048
     Dates: start: 20010101

REACTIONS (1)
  - MUSCLE SPASMS [None]
